FAERS Safety Report 15798403 (Version 1)
Quarter: 2019Q1

REPORT INFORMATION
  Report Type: Spontaneous
  Country: MX (occurrence: MX)
  Receive Date: 20190108
  Receipt Date: 20190108
  Transmission Date: 20190417
  Serious: Yes (Other)
  Sender: FDA-Public Use
  Company Number: IND-MX-009507513-1901MEX000887

PATIENT
  Sex: Female

DRUGS (1)
  1. ESMERON [Suspect]
     Active Substance: ROCURONIUM BROMIDE
     Indication: MUSCLE RELAXANT THERAPY
     Dosage: UNK
     Dates: start: 201812

REACTIONS (2)
  - Endotracheal intubation complication [Unknown]
  - Drug ineffective [Unknown]

NARRATIVE: CASE EVENT DATE: 201812
